FAERS Safety Report 18925097 (Version 1)
Quarter: 2021Q1

REPORT INFORMATION
  Report Type: Spontaneous
  Country: JP (occurrence: JP)
  Receive Date: 20210222
  Receipt Date: 20210222
  Transmission Date: 20210420
  Serious: Yes (Other)
  Sender: FDA-Public Use
  Company Number: JP-PFIZER INC-2021157685

PATIENT

DRUGS (6)
  1. ALPRAZOLAM. [Suspect]
     Active Substance: ALPRAZOLAM
     Dosage: UNK
     Route: 048
  2. TRAZODONE HYDROCHLORIDE. [Suspect]
     Active Substance: TRAZODONE HYDROCHLORIDE
     Dosage: UNK
     Route: 048
  3. AMLODIPINE BESILATE [Suspect]
     Active Substance: AMLODIPINE BESYLATE
     Dosage: UNK
     Route: 048
  4. SELARA [Suspect]
     Active Substance: EPLERENONE
     Dosage: UNK
     Route: 048
  5. SERTRALINE HCL [Suspect]
     Active Substance: SERTRALINE HYDROCHLORIDE
     Dosage: UNK
     Route: 048
  6. TRIAZOLAM. [Suspect]
     Active Substance: TRIAZOLAM
     Dosage: UNK
     Route: 048

REACTIONS (5)
  - Rhabdomyolysis [Unknown]
  - Myositis [Unknown]
  - Malaise [Unknown]
  - Muscular weakness [Unknown]
  - Asthenia [Unknown]
